FAERS Safety Report 9436233 (Version 1)
Quarter: 2013Q3

REPORT INFORMATION
  Report Type: Report from Study
  Country: US (occurrence: US)
  Receive Date: 20130801
  Receipt Date: 20130801
  Transmission Date: 20140515
  Serious: Yes (Hospitalization)
  Sender: FDA-Public Use
  Company Number: US-MERCK-1302USA008149

PATIENT
  Age: 57 Year
  Sex: Male
  Weight: 89.8 kg

DRUGS (4)
  1. VORINOSTAT [Suspect]
     Indication: PLASMA CELL MYELOMA
     Dosage: 300 MG, DAYS 1-7, 15-21
     Route: 048
     Dates: start: 20120820
  2. CARFILZOMIB [Suspect]
     Indication: PLASMA CELL MYELOMA
     Dosage: 20 MG/M2, DAYS 1,2,8,9,15,16
     Route: 042
     Dates: start: 20120820
  3. LENALIDOMIDE [Suspect]
     Indication: PLASMA CELL MYELOMA
     Dosage: 15 MG ON DAYS 1-21
  4. DEXAMETHASONE [Suspect]
     Dosage: 40 MG ON DAYS 1,8,15
     Route: 042

REACTIONS (2)
  - Dyspnoea [Unknown]
  - Pneumonia [Unknown]
